FAERS Safety Report 4530766-1 (Version None)
Quarter: 2004Q4

REPORT INFORMATION
  Report Type: 
  Country: None (occurrence: None)
  Receive Date: 20041129
  Receipt Date: 20040526
  Transmission Date: 20050328
  Serious: Yes (Death, Hospitalization, Other)
  Sender: FDA-Public Use
  Company Number: USA040669280

PATIENT
  Age: 66 Year
  Sex: Male

DRUGS (5)
  1. ZYPREXA [Suspect]
     Dosage: 10 MG/1 AT BEDTIME
     Dates: start: 19990105
  2. PLENDIL [Concomitant]
  3. COZAAR [Concomitant]
  4. METOPROLOL [Concomitant]
  5. ACETYLSALICYLIC ACID SRT [Concomitant]

REACTIONS (8)
  - ASPIRATION [None]
  - CEREBRAL INFARCTION [None]
  - CONFUSIONAL STATE [None]
  - EXTRAPYRAMIDAL DISORDER [None]
  - MUSCLE RIGIDITY [None]
  - PNEUMONIA [None]
  - SYNCOPE [None]
  - VOMITING [None]
